FAERS Safety Report 10720681 (Version 1)
Quarter: 2015Q1

REPORT INFORMATION
  Report Type: Spontaneous
  Country: TR (occurrence: TR)
  Receive Date: 20150119
  Receipt Date: 20150119
  Transmission Date: 20150721
  Serious: Yes (Hospitalization)
  Sender: FDA-Public Use
  Company Number: TR-NOVOPROD-435041

PATIENT
  Age: 15 Year
  Sex: Male
  Weight: 29 kg

DRUGS (1)
  1. NORDITROPIN [Suspect]
     Active Substance: SOMATROPIN
     Indication: GROWTH HORMONE DEFICIENCY
     Dosage: UNKNOWN
     Route: 065
     Dates: start: 20140410

REACTIONS (1)
  - Kidney infection [Unknown]
